FAERS Safety Report 15697268 (Version 4)
Quarter: 2019Q1

REPORT INFORMATION
  Report Type: Report from Study
  Country: US (occurrence: US)
  Receive Date: 20181206
  Receipt Date: 20190329
  Transmission Date: 20190417
  Serious: No
  Sender: FDA-Public Use
  Company Number: PHEH2018US050491

PATIENT
  Sex: Female

DRUGS (1)
  1. COSENTYX [Suspect]
     Active Substance: SECUKINUMAB
     Indication: PSORIASIS
     Dosage: UNK
     Route: 058

REACTIONS (9)
  - Oropharyngeal pain [Unknown]
  - Candida infection [Recovered/Resolved]
  - Sinus disorder [Unknown]
  - Rash [Unknown]
  - Throat irritation [Unknown]
  - Fatigue [Unknown]
  - Ear infection [Unknown]
  - Stomatitis [Unknown]
  - Oral candidiasis [Unknown]
